FAERS Safety Report 4498297-5 (Version None)
Quarter: 2004Q4

REPORT INFORMATION
  Report Type: 
  Country: None (occurrence: None)
  Receive Date: 20041109
  Receipt Date: 20041109
  Transmission Date: 20050328
  Serious: Yes (Disabling, Other)
  Sender: FDA-Public Use
  Company Number: None

PATIENT
  Age: 71 Year
  Sex: Male
  Weight: 106.5953 kg

DRUGS (2)
  1. CIPROFLOXACIN [Suspect]
     Indication: ESCHERICHIA INFECTION
     Dosage: 2/DAY  7DAYS
     Dates: start: 20040628, end: 20040705
  2. CIPROFLOXACIN [Suspect]
     Indication: URINARY TRACT INFECTION
     Dosage: 2/DAY  7DAYS
     Dates: start: 20040628, end: 20040705

REACTIONS (2)
  - ASTHENIA [None]
  - MOVEMENT DISORDER [None]
